FAERS Safety Report 23711072 (Version 1)
Quarter: 2024Q2

REPORT INFORMATION
  Report Type: Spontaneous
  Country: GB (occurrence: GB)
  Receive Date: 20240405
  Receipt Date: 20240405
  Transmission Date: 20240716
  Serious: Yes (Other)
  Sender: FDA-Public Use
  Company Number: None

PATIENT
  Sex: Female

DRUGS (1)
  1. IBUPROFEN [Suspect]
     Active Substance: IBUPROFEN
     Indication: Product used for unknown indication
     Dosage: UNK (100 MILLIGRAM/5MILLILITER ORAL SUSPENSION)
     Route: 048

REACTIONS (3)
  - Burn oral cavity [Unknown]
  - Crying [Unknown]
  - Hypoaesthesia oral [Unknown]
